FAERS Safety Report 8965358 (Version 1)
Quarter: 2012Q4

REPORT INFORMATION
  Report Type: 
  Country: BR (occurrence: BR)
  Receive Date: 20121213
  Receipt Date: 20121213
  Transmission Date: 20130627
  Serious: No
  Sender: FDA-Public Use
  Company Number: BR-ELI_LILLY_AND_COMPANY-BR201212000852

PATIENT
  Sex: Female

DRUGS (2)
  1. CYMBALTA [Suspect]
     Dosage: 30 mg, unknown
     Route: 065
     Dates: start: 201205
  2. CYMBALTA [Suspect]
     Dosage: 60 mg, unknown
     Route: 065
     Dates: end: 20121118

REACTIONS (5)
  - Alanine aminotransferase increased [Not Recovered/Not Resolved]
  - Irritability [Unknown]
  - Fluid retention [Unknown]
  - Insomnia [Unknown]
  - Weight increased [Unknown]
